FAERS Safety Report 13197801 (Version 23)
Quarter: 2019Q4

REPORT INFORMATION
  Report Type: Spontaneous
  Country: US (occurrence: US)
  Receive Date: 20170208
  Receipt Date: 20191226
  Transmission Date: 20200122
  Serious: Yes (Hospitalization, Disabling, Other)
  Sender: FDA-Public Use
  Company Number: US-PFIZER INC-2017056065

PATIENT
  Age: 57 Year
  Sex: Male

DRUGS (114)
  1. DILANTIN [Suspect]
     Active Substance: PHENYTOIN
     Dosage: 400 MG, DAILY (100 MG CAPSULE ONE IN AM, ONE CAPSULE AT NOON, 2 CAPSULES PM)
     Route: 048
     Dates: start: 20070924
  2. DILANTIN [Suspect]
     Active Substance: PHENYTOIN
     Dosage: 300 MG (100 MG ONE CAPSULE AM AND TWO CAPSULES PM)
     Route: 048
     Dates: start: 20081203, end: 20090827
  3. DILANTIN [Suspect]
     Active Substance: PHENYTOIN
     Dosage: 200 MG, 2X/DAY
     Route: 048
     Dates: start: 20180510, end: 20180621
  4. DILANTIN [Suspect]
     Active Substance: PHENYTOIN
     Dosage: TAKE 2 TABLETS(100 MG) TWO TIMES DAILY + 3 TABS (150MG) AT NIGHT VIA G-TUBE
     Route: 048
     Dates: start: 20160502
  5. DILANTIN [Suspect]
     Active Substance: PHENYTOIN
     Indication: EPILEPSY
     Dosage: UNK
     Dates: start: 1966
  6. LAMICTAL [Concomitant]
     Active Substance: LAMOTRIGINE
     Indication: SEIZURE
     Dosage: 400 MG, 2X/DAY (200 MG TABLET ORALLY TWO TABLETS TWICE DAILY)
     Route: 048
     Dates: start: 20070924
  7. ONFI [Concomitant]
     Active Substance: CLOBAZAM
     Indication: SEIZURE
     Dosage: UNK
     Dates: start: 2012
  8. LAMOTRIGINE. [Concomitant]
     Active Substance: LAMOTRIGINE
     Dosage: 200 MG, 2X/DAY
     Route: 048
  9. LAMOTRIGINE. [Concomitant]
     Active Substance: LAMOTRIGINE
     Dosage: 500 MG, 3X/DAY (EXTENDED RELEASED24 HR)
     Route: 048
     Dates: start: 20160627
  10. BUSPIRONE [Concomitant]
     Active Substance: BUSPIRONE HYDROCHLORIDE
     Indication: EPILEPSY
     Dosage: 10 MG, UNK
     Route: 048
     Dates: start: 20141201
  11. ACETAMINOPHEN. [Concomitant]
     Active Substance: ACETAMINOPHEN
     Indication: PYREXIA
  12. RISPERIDONE. [Concomitant]
     Active Substance: RISPERIDONE
     Indication: DEMENTIA
     Dosage: UNK
     Dates: start: 2018
  13. BUSPAR [Concomitant]
     Active Substance: BUSPIRONE HYDROCHLORIDE
     Dosage: 10 MG, 1 TABLET VIA G-TUBE 2 TIMES DAILY
     Dates: start: 20150917
  14. DILANTIN [Suspect]
     Active Substance: PHENYTOIN
     Dosage: 300 MG, DAILY (100 MG IN THE MORNING (Q AM) AND 200 MG IN THE EVENING (Q PM) ON ODD DAYS)
     Route: 048
     Dates: start: 20170827, end: 20180215
  15. DILANTIN [Suspect]
     Active Substance: PHENYTOIN
     Dosage: 150 MG, 1X/DAY (50 MG, 3 TABLETS, AT BED TIME)
     Route: 048
     Dates: start: 20180823, end: 20181002
  16. DILANTIN-125 [Suspect]
     Active Substance: PHENYTOIN
     Indication: SEIZURE
     Dosage: 4 ML, 1X/DAY (125 MG/5ML), 4 ML (100 MG) VIA G-TUBE)
     Route: 048
     Dates: start: 20161008, end: 20170822
  17. DILANTIN-125 [Suspect]
     Active Substance: PHENYTOIN
     Dosage: 8 ML, 2X/DAY (125 MG/5ML), 8 ML (200 MG) VIA G-TUBE ON EVEN DAYS)
     Route: 048
     Dates: start: 20170702, end: 20170826
  18. DILANTIN-125 [Suspect]
     Active Substance: PHENYTOIN
     Dosage: 200 MG, SINGLE
     Route: 048
     Dates: start: 20170825
  19. LAMICTAL [Concomitant]
     Active Substance: LAMOTRIGINE
     Dosage: UNK (6 TABLETS IN MORNING, 5 TABLETS AFTERNOON AND 6 TABLETS AT NIGHT)
     Dates: start: 20150906
  20. LAMICTAL [Concomitant]
     Active Substance: LAMOTRIGINE
     Dosage: 600 MG, TID
  21. PHENOBARBITAL. [Concomitant]
     Active Substance: PHENOBARBITAL
     Dosage: UNK
     Dates: start: 2011
  22. LEVETIRACETAM. [Concomitant]
     Active Substance: LEVETIRACETAM
     Dosage: UNK
     Dates: start: 2009
  23. LORAZEPAM. [Concomitant]
     Active Substance: LORAZEPAM
     Indication: ANXIETY
     Dosage: 1 DF, UNK
  24. BISACODYL. [Concomitant]
     Active Substance: BISACODYL
     Indication: CONSTIPATION
     Dosage: UNK
     Dates: start: 2017
  25. DIAZEPAM. [Concomitant]
     Active Substance: DIAZEPAM
     Dosage: UNK (RECTAL KIT)
     Route: 054
     Dates: start: 20161219
  26. LORATADINE. [Concomitant]
     Active Substance: LORATADINE
     Indication: NASOPHARYNGITIS
     Dosage: UNK
     Dates: start: 2009
  27. LORATADINE. [Concomitant]
     Active Substance: LORATADINE
     Dosage: UNK (5 MG/5 ML, AS NEEDED)
     Dates: start: 20160201
  28. SENNA S [Concomitant]
     Active Substance: DOCUSATE SODIUM\SENNA LEAF
     Indication: CONSTIPATION
     Dosage: UNK
     Dates: start: 2017
  29. FERROUS SULFATE. [Concomitant]
     Active Substance: FERROUS SULFATE
     Indication: SUPPLEMENTATION THERAPY
     Dosage: UNK
     Dates: start: 2017
  30. AVELOX [Concomitant]
     Active Substance: MOXIFLOXACIN HYDROCHLORIDE
     Dosage: 1 DF, DAILY
     Route: 048
     Dates: start: 20130102, end: 20130112
  31. PROTONIX [Concomitant]
     Active Substance: PANTOPRAZOLE SODIUM
     Dosage: 1 DF, DAILY
     Route: 048
     Dates: start: 20121210
  32. ASPIR 81 [Concomitant]
     Active Substance: ASPIRIN
     Dosage: 1 DF, DAILY
     Route: 048
     Dates: start: 20150906
  33. DILANTIN [Suspect]
     Active Substance: PHENYTOIN
     Dosage: 500 MG, DAILY (100 MG TWO CAPSULES AM, ONE CAPSULE AT NOON AND TWO CAPSULES PM
     Route: 048
     Dates: start: 20061030
  34. DILANTIN [Suspect]
     Active Substance: PHENYTOIN
     Dosage: 150 MG, 1X/DAY (50 MG, 3 TABLETS, IN THE EVENING)
     Route: 048
     Dates: start: 20181228, end: 20190218
  35. DILANTIN [Suspect]
     Active Substance: PHENYTOIN
     Dosage: 350 MG, DAILY (50 MG, 3 TABS IN THE MORNING AND 4 TABS AT NIGHT)
     Route: 048
     Dates: start: 20190218
  36. DILANTIN [Suspect]
     Active Substance: PHENYTOIN
     Dosage: 2 DF, 4X/DAY
     Route: 048
     Dates: start: 20121210
  37. DILANTIN-125 [Suspect]
     Active Substance: PHENYTOIN
     Dosage: 100 MG, 1X/DAY
     Route: 048
  38. LAMICTAL [Concomitant]
     Active Substance: LAMOTRIGINE
     Dosage: 1600 MG, UNK (AS 600 MG, 500 MG AND 500 MG)
  39. PHENOBARBITAL. [Concomitant]
     Active Substance: PHENOBARBITAL
     Indication: SEIZURE
     Dosage: UNK
     Dates: start: 1957, end: 1966
  40. PHENOBARBITAL. [Concomitant]
     Active Substance: PHENOBARBITAL
     Indication: EPILEPSY
     Dosage: UNK
     Dates: start: 2009
  41. PHENOBARBITAL. [Concomitant]
     Active Substance: PHENOBARBITAL
     Dosage: 30 MG, 1X/DAY (1 PILL)
     Route: 048
  42. PHENOBARBITAL. [Concomitant]
     Active Substance: PHENOBARBITAL
     Dosage: UNK
  43. KEPPRA [Concomitant]
     Active Substance: LEVETIRACETAM
     Indication: SEIZURE
     Dosage: 500 MG, 2X/DAY (4 PILLS)
  44. LEVETIRACETAM. [Concomitant]
     Active Substance: LEVETIRACETAM
     Indication: EPILEPSY
     Dosage: 4 DF, 2X/DAY
     Route: 048
  45. LEVETIRACETAM. [Concomitant]
     Active Substance: LEVETIRACETAM
     Dosage: 5 DF (EVERY 12 HRS)
     Route: 048
     Dates: start: 20121210
  46. LORAZEPAM. [Concomitant]
     Active Substance: LORAZEPAM
     Dosage: 1 DF, DAILY
     Route: 048
     Dates: start: 20150906
  47. FOSAMAX [Concomitant]
     Active Substance: ALENDRONATE SODIUM
     Dosage: 70 MG, WEEKLY (1 PILL)
     Route: 048
  48. FOSAMAX [Concomitant]
     Active Substance: ALENDRONATE SODIUM
     Dosage: 70MG/75ML, ADMINISTER 75 ML VIA G -TUBE EVERY FRIDAY
     Dates: start: 20160129
  49. ASPIRIN EC [Concomitant]
     Active Substance: ASPIRIN
     Dosage: 81 MG, DAILY (1 PILL)
     Route: 048
  50. SAW PALMETTO [Concomitant]
     Active Substance: HERBALS\SAW PALMETTO
     Dosage: 160 MG, 1X/DAY (1 PILL)
     Route: 048
  51. ALBUTEROL. [Concomitant]
     Active Substance: ALBUTEROL
     Indication: DYSPNOEA
     Dosage: UNK
     Dates: start: 2012
  52. ENOXAPARIN SODIUM. [Concomitant]
     Active Substance: ENOXAPARIN SODIUM
     Dosage: (80 MG/0.8 ML SUBCUTANEOUS SYRINGE)12 TIMES PER DAY
     Route: 058
     Dates: start: 20121210, end: 20121213
  53. OMEPRAZOLE. [Concomitant]
     Active Substance: OMEPRAZOLE
     Indication: INSOMNIA
     Dosage: 20 MG, QD TUBE
  54. ALBUTEROL SULFATE. [Concomitant]
     Active Substance: ALBUTEROL SULFATE
     Indication: DYSPNOEA
     Dosage: UNK, AS NEEDED (SOLUTION FOR NEBULIZATION)
     Dates: start: 20160201
  55. DILANTIN [Suspect]
     Active Substance: PHENYTOIN
     Dosage: UNK (TAKES TWO TABS IN THE MORNING, TWO TABS IN THE EVENING, AND 2.5 TABS AT BEDTIME)
     Route: 048
     Dates: start: 20120424, end: 20120503
  56. DILANTIN [Suspect]
     Active Substance: PHENYTOIN
     Dosage: 300 MG TOTAL ON ODD DAYS (2 DF, 3 TIMES DAILY); 325 MG ON EVEN DAYS (2 MORNING, 2 AFTERNOON, 2.5 PM
     Route: 048
     Dates: start: 20120503, end: 20120516
  57. LAMOTRIGINE. [Concomitant]
     Active Substance: LAMOTRIGINE
     Indication: SEIZURE
     Dosage: 5 DF, 3X/DAY
     Route: 048
  58. LAMOTRIGINE. [Concomitant]
     Active Substance: LAMOTRIGINE
     Indication: EPILEPSY
     Dosage: UNK
  59. BUSPIRONE [Concomitant]
     Active Substance: BUSPIRONE HYDROCHLORIDE
     Indication: MOOD SWINGS
     Dosage: UNK
     Dates: start: 2013
  60. CLOBAZAM. [Concomitant]
     Active Substance: CLOBAZAM
     Indication: EPILEPSY
     Dosage: UNK
     Dates: start: 2013
  61. DILANTIN [Suspect]
     Active Substance: PHENYTOIN
     Dosage: 200 MG, 1X/DAY (50 MG, 4 TABLETS)
     Route: 048
     Dates: start: 20180824, end: 20181204
  62. DILANTIN [Suspect]
     Active Substance: PHENYTOIN
     Dosage: 1.5 DF, DAILY (75 MG AT 5 PM EVERY DAY)
     Route: 048
     Dates: start: 20150906
  63. DILANTIN [Suspect]
     Active Substance: PHENYTOIN
     Indication: EPILEPSY
     Dosage: 3 DF, 2X/DAY
     Route: 048
     Dates: start: 20180215
  64. KEPPRA [Concomitant]
     Active Substance: LEVETIRACETAM
     Dosage: UNK
     Dates: start: 2009
  65. ONFI [Concomitant]
     Active Substance: CLOBAZAM
     Dosage: 20 MG, BID
  66. LEVETIRACETAM. [Concomitant]
     Active Substance: LEVETIRACETAM
     Dosage: 5 DF, 3X/DAY
     Dates: start: 20150906
  67. BUSPIRONE [Concomitant]
     Active Substance: BUSPIRONE HYDROCHLORIDE
     Indication: DEPRESSION
     Dosage: 1 DF, 2X/DAY
  68. VIMPAT [Concomitant]
     Active Substance: LACOSAMIDE
     Dosage: 200 MG, 2X/DAY (1 PILL)
     Route: 048
  69. MELATONIN [Concomitant]
     Active Substance: MELATONIN
     Dosage: 3 MG, QD TUBE
  70. DIAZEPAM. [Concomitant]
     Active Substance: DIAZEPAM
     Indication: EPILEPSY
     Dosage: UNK
     Route: 054
     Dates: start: 2013
  71. DIAZEPAM. [Concomitant]
     Active Substance: DIAZEPAM
     Indication: SEIZURE
     Dosage: 1 DF (12.5 MG-15 MG-17.5 MG-20 MG), AS NEEDED
     Route: 054
     Dates: start: 20150906
  72. RANITIDINE. [Concomitant]
     Active Substance: RANITIDINE
     Indication: GASTROOESOPHAGEAL REFLUX DISEASE
     Dosage: UNK
     Dates: start: 2017
  73. ERGOCALCIFEROL. [Concomitant]
     Active Substance: ERGOCALCIFEROL
     Indication: VITAMIN D DEFICIENCY
     Dosage: 8000 IU, 2X/WEEK
  74. FERROUS SULFATE. [Concomitant]
     Active Substance: FERROUS SULFATE
     Indication: ANAEMIA
     Dosage: 325 MG, 2X/DAY (65 MG IRON)
     Route: 048
     Dates: start: 20171206
  75. WARFARIN SODIUM. [Concomitant]
     Active Substance: WARFARIN SODIUM
     Dosage: 1 DF, DAILY
     Route: 048
     Dates: start: 20121210
  76. IRON [Concomitant]
     Active Substance: IRON
     Indication: IRON DEFICIENCY ANAEMIA
     Dosage: 300 MG, BID
     Route: 048
  77. DILANTIN [Suspect]
     Active Substance: PHENYTOIN
     Indication: GENERALISED TONIC-CLONIC SEIZURE
     Dosage: 100 MG, 3X/DAY
     Route: 048
     Dates: start: 20060621
  78. DILANTIN [Suspect]
     Active Substance: PHENYTOIN
     Dosage: 325 MG, DAILY (AS 100 MG, 100 MG AND 125 MG)
     Route: 048
  79. DILANTIN [Suspect]
     Active Substance: PHENYTOIN
     Indication: GENERALISED TONIC-CLONIC SEIZURE
     Dosage: UNK
     Route: 048
     Dates: start: 1966, end: 2009
  80. DILANTIN [Suspect]
     Active Substance: PHENYTOIN
     Dosage: 200 MG, 2X/DAY (ON EVEN DAYS)
     Route: 048
     Dates: start: 20170826, end: 20180215
  81. DILANTIN [Suspect]
     Active Substance: PHENYTOIN
     Dosage: 200 MG, 2X/DAY
     Route: 048
     Dates: start: 20180215, end: 20180508
  82. DILANTIN [Suspect]
     Active Substance: PHENYTOIN
     Dosage: 200 MG, SINGLE (50 MG, 4 TABLETS, ONE TIME ONLY)
     Route: 048
     Dates: start: 20180509, end: 20180509
  83. DILANTIN [Suspect]
     Active Substance: PHENYTOIN
     Dosage: 100 MG, 1X/DAY (50 MG, 2 TABLETS, IN THE MORNING)
     Route: 048
     Dates: start: 20181229, end: 20190109
  84. DILANTIN [Suspect]
     Active Substance: PHENYTOIN
     Dosage: 150 MG, 1X/DAY (50 MG, 3 TABLETS, IN THE MORNING)
     Route: 048
     Dates: start: 20190110, end: 20190322
  85. DILANTIN [Suspect]
     Active Substance: PHENYTOIN
     Indication: SEIZURE
     Dosage: 500 MG, 3X/DAY (IVPB)
     Route: 042
     Dates: start: 20001122
  86. PHENOBARBITAL. [Concomitant]
     Active Substance: PHENOBARBITAL
     Dosage: 32.4MG BID QPM AND 16.2MG QAM
  87. ATIVAN [Concomitant]
     Active Substance: LORAZEPAM
     Dosage: UNK
     Dates: start: 2009
  88. ONFI [Concomitant]
     Active Substance: CLOBAZAM
     Indication: EPILEPSY
     Dosage: UNK (12 TIMES PER DAY)
     Dates: start: 20150906
  89. LEVETIRACETAM. [Concomitant]
     Active Substance: LEVETIRACETAM
     Indication: SEIZURE
     Dosage: 3 DF, 2X/DAY
     Route: 048
     Dates: start: 20141201
  90. LORAZEPAM. [Concomitant]
     Active Substance: LORAZEPAM
     Indication: EPILEPSY
     Dosage: 0.5 MG, 2X/DAY
     Route: 048
     Dates: start: 20121210
  91. LORAZEPAM. [Concomitant]
     Active Substance: LORAZEPAM
     Dosage: UNK
     Dates: start: 2010
  92. BUSPIRONE [Concomitant]
     Active Substance: BUSPIRONE HYDROCHLORIDE
     Indication: GENERALISED ANXIETY DISORDER
     Dosage: 10 MG, TUBE BID
  93. CALCIUM CARBONATE. [Concomitant]
     Active Substance: CALCIUM CARBONATE
     Dosage: 600 MG, DAILY (1 PILL)
     Route: 048
  94. MELATONIN [Concomitant]
     Active Substance: MELATONIN
     Indication: INSOMNIA
     Dosage: 6 MG, 1X/DAY (2 PILLS)
     Route: 048
  95. FLORASTOR [Concomitant]
     Active Substance: SACCHAROMYCES CEREVISIAE
     Indication: PROBIOTIC THERAPY
     Dosage: UNK
     Dates: start: 2016
  96. BUSPIRONE HCL [Concomitant]
     Active Substance: BUSPIRONE HYDROCHLORIDE
     Dosage: 2 DF, DAILY
     Dates: start: 20150906
  97. CEPHALEXIN. [Concomitant]
     Active Substance: CEPHALEXIN
     Dosage: 1 DF, 2X/DAY
     Route: 048
     Dates: start: 20121217, end: 20121219
  98. DILANTIN [Suspect]
     Active Substance: PHENYTOIN
     Dosage: UNK
     Dates: start: 201201
  99. DILANTIN [Suspect]
     Active Substance: PHENYTOIN
     Dosage: 150 MG, 1X/DAY (50 MG, 3 TABLETS, IN THE EVENING)
     Route: 048
     Dates: start: 20181002, end: 20181203
  100. DILANTIN [Suspect]
     Active Substance: PHENYTOIN
     Dosage: 150 MG, 2X/DAY (50 MG, 3 TABLETS)
     Route: 048
     Dates: start: 20181204, end: 20181228
  101. ATIVAN [Concomitant]
     Active Substance: LORAZEPAM
     Indication: SEIZURE
     Dosage: 0.5 MG, 2X/DAY (1 PILL)
  102. LAMOTRIGINE. [Concomitant]
     Active Substance: LAMOTRIGINE
     Dosage: 250 MG, 2X/DAY (2.5 TABLET)
     Route: 048
  103. FISH OIL [Concomitant]
     Active Substance: FISH OIL
     Dosage: 1000 MG, 1X/DAY (1 PILL)
     Route: 048
  104. ACETAMINOPHEN. [Concomitant]
     Active Substance: ACETAMINOPHEN
     Indication: PAIN
     Dosage: UNK
     Dates: start: 1970
  105. ALENDRONATE [Concomitant]
     Active Substance: ALENDRONATE SODIUM
     Indication: OSTEOPOROSIS
     Dosage: UNK
     Dates: start: 1999
  106. FLORASTOR [Concomitant]
     Active Substance: SACCHAROMYCES CEREVISIAE
     Dosage: 250 MG, 2X/DAY (ENTERAL)
     Dates: start: 20170607
  107. POLYETHYLENE GLYCOL [Concomitant]
     Active Substance: POLYETHYLENE GLYCOLS
     Indication: CONSTIPATION
     Dosage: UNK
     Dates: start: 2017
  108. DILANTIN [Suspect]
     Active Substance: PHENYTOIN
     Dosage: 350 MG, UNK (INCREASED FROM 300 TO 350 MG)
     Route: 048
  109. DILANTIN [Suspect]
     Active Substance: PHENYTOIN
     Dosage: 150 MG, 2X/DAY (50 MG, 3 TABLETS)
     Route: 048
     Dates: start: 20190323, end: 20190327
  110. DILANTIN-125 [Suspect]
     Active Substance: PHENYTOIN
     Dosage: 200 MG, NIGHTLY
     Route: 048
  111. LAMICTAL [Concomitant]
     Active Substance: LAMOTRIGINE
     Indication: EPILEPSY
     Dosage: UNK
     Dates: start: 2009
  112. LAMICTAL [Concomitant]
     Active Substance: LAMOTRIGINE
     Dosage: 200 MG, 2X/DAY (1 PILL)
  113. LAMOTRIGINE. [Concomitant]
     Active Substance: LAMOTRIGINE
     Dosage: UNK
     Dates: start: 2009
  114. ERGOCALCIFEROL. [Concomitant]
     Active Substance: ERGOCALCIFEROL
     Indication: SUPPLEMENTATION THERAPY
     Dosage: UNK
     Dates: start: 2014

REACTIONS (42)
  - Neuropathy peripheral [Not Recovered/Not Resolved]
  - Drug dependence [Unknown]
  - Diplopia [Unknown]
  - Pleural effusion [Unknown]
  - Coordination abnormal [Not Recovered/Not Resolved]
  - Osteoporosis [Unknown]
  - Sexual dysfunction [Unknown]
  - Urinary tract infection [Not Recovered/Not Resolved]
  - Fall [Unknown]
  - Pulmonary embolism [Unknown]
  - Balance disorder [Not Recovered/Not Resolved]
  - Tremor [Not Recovered/Not Resolved]
  - Hemiparesis [Unknown]
  - Bone metabolism disorder [Unknown]
  - Loss of personal independence in daily activities [Unknown]
  - Dysstasia [Unknown]
  - Dysphagia [Unknown]
  - Cognitive disorder [Not Recovered/Not Resolved]
  - Muscular weakness [Not Recovered/Not Resolved]
  - Speech disorder [Not Recovered/Not Resolved]
  - Pulmonary congestion [Unknown]
  - Toxicity to various agents [Recovering/Resolving]
  - Rib fracture [Unknown]
  - Anal incontinence [Not Recovered/Not Resolved]
  - Ataxia [Not Recovered/Not Resolved]
  - Memory impairment [Not Recovered/Not Resolved]
  - Vitamin D deficiency [Unknown]
  - Dementia [Unknown]
  - Urinary incontinence [Unknown]
  - Amnesia [Not Recovered/Not Resolved]
  - Cerebrovascular accident [Unknown]
  - Hemiplegia [Unknown]
  - Encephalopathy [Unknown]
  - Cerebellar atrophy [Not Recovered/Not Resolved]
  - Dysarthria [Not Recovered/Not Resolved]
  - Mental status changes [Recovered/Resolved]
  - Gingival hypertrophy [Unknown]
  - Sleep apnoea syndrome [Not Recovered/Not Resolved]
  - Lethargy [Recovering/Resolving]
  - Gait inability [Unknown]
  - Impaired driving ability [Unknown]
  - Atelectasis [Unknown]

NARRATIVE: CASE EVENT DATE: 20070924
